FAERS Safety Report 12602502 (Version 1)
Quarter: 2016Q3

REPORT INFORMATION
  Report Type: Spontaneous
  Country: US (occurrence: US)
  Receive Date: 20160728
  Receipt Date: 20160728
  Transmission Date: 20161109
  Serious: No
  Sender: FDA-Public Use
  Company Number: US-BAUSCH-BL-2015-017574

PATIENT
  Age: 65 Year
  Sex: Male

DRUGS (1)
  1. OPCON-A [Suspect]
     Active Substance: NAPHAZOLINE HYDROCHLORIDE\PHENIRAMINE MALEATE
     Indication: PRODUCT USED FOR UNKNOWN INDICATION
     Dosage: ONE TO TWO DROPS IN EACH EYE.
     Route: 047

REACTIONS (2)
  - Photophobia [Recovered/Resolved]
  - Mydriasis [Recovered/Resolved]
